FAERS Safety Report 5118916-X (Version None)
Quarter: 2006Q3

REPORT INFORMATION
  Report Type: 
  Country: None (occurrence: None)
  Receive Date: 20060927
  Receipt Date: 20060830
  Transmission Date: 20061208
  Serious: Yes (Death, Hospitalization)
  Sender: FDA-Public Use
  Company Number: 2005130944

PATIENT
  Age: 72 Year
  Sex: Female
  Weight: 72.5755 kg

DRUGS (6)
  1. BEXTRA [Suspect]
     Indication: ARTHRITIS
     Dosage: 10 MG (10 MG,1 IN 1 D), ORAL
     Route: 048
     Dates: start: 20020912, end: 20030630
  2. BEXTRA [Suspect]
     Indication: PAIN
     Dosage: 10 MG (10 MG,1 IN 1 D), ORAL
     Route: 048
     Dates: start: 20020912, end: 20030630
  3. VALIUM [Concomitant]
  4. LIBRAX [Concomitant]
  5. MECLIZINE [Concomitant]
  6. CIMETIDINE [Concomitant]

REACTIONS (13)
  - AGONAL RHYTHM [None]
  - AORTIC VALVE INCOMPETENCE [None]
  - APNOEIC ATTACK [None]
  - BRADYCARDIA [None]
  - CARDIAC OUTPUT INCREASED [None]
  - DIABETIC KETOACIDOSIS [None]
  - MALAISE [None]
  - MITRAL VALVE INCOMPETENCE [None]
  - MYOCARDIAL INFARCTION [None]
  - PULSE ABSENT [None]
  - RESPIRATORY ARREST [None]
  - TRICUSPID VALVE INCOMPETENCE [None]
  - ULTRASOUND DOPPLER ABNORMAL [None]
